FAERS Safety Report 9330915 (Version 1)
Quarter: 2013Q2

REPORT INFORMATION
  Report Type: Spontaneous
  Country: US (occurrence: US)
  Receive Date: 20130605
  Receipt Date: 20130605
  Transmission Date: 20140414
  Serious: Yes (Death)
  Sender: FDA-Public Use
  Company Number: US-PFIZER INC-2013166581

PATIENT
  Age: 83 Year
  Sex: Male
  Weight: 44.9 kg

DRUGS (6)
  1. FLAGYL [Suspect]
     Indication: CLOSTRIDIUM DIFFICILE INFECTION
     Dosage: 250 MG, 3X/DAY
     Route: 048
     Dates: start: 201305, end: 201305
  2. FLAGYL [Suspect]
     Dosage: UNK
     Route: 048
     Dates: start: 201305
  3. INSULIN [Concomitant]
     Dosage: UNK
  4. LIPITOR [Concomitant]
     Dosage: UNK
  5. ARICEPT [Concomitant]
     Dosage: UNK
  6. NAMENDA [Concomitant]
     Dosage: UNK

REACTIONS (1)
  - Drug hypersensitivity [Fatal]
